FAERS Safety Report 7251991-5 (Version None)
Quarter: 2011Q1

REPORT INFORMATION
  Report Type: 
  Country: None (occurrence: None)
  Receive Date: 20110128
  Receipt Date: 20100111
  Transmission Date: 20110831
  Serious: No
  Sender: FDA-Public Use
  Company Number: US-ABBOTT-10P-163-0619091-00

PATIENT
  Sex: Male
  Weight: 83.99 kg

DRUGS (5)
  1. COZAAR [Concomitant]
     Indication: PRODUCT USED FOR UNKNOWN INDICATION
  2. UNKNOWN BLOOD PRESSURE MEDICATION [Concomitant]
     Indication: HYPERTENSION
  3. UNKNOWN BLOOD PRESSURE MEDICATION [Concomitant]
  4. HUMIRA [Suspect]
     Route: 058
     Dates: start: 20070101
  5. HUMIRA [Suspect]
     Indication: RHEUMATOID ARTHRITIS
     Route: 058
     Dates: start: 20070101, end: 20070101

REACTIONS (3)
  - BRONCHITIS [None]
  - OSTEOPOROSIS [None]
  - DRUG INEFFECTIVE [None]
